FAERS Safety Report 13102419 (Version 1)
Quarter: 2017Q1

REPORT INFORMATION
  Report Type: Spontaneous
  Country: NL (occurrence: NL)
  Receive Date: 20170110
  Receipt Date: 20170110
  Transmission Date: 20170428
  Serious: Yes (Death)
  Sender: FDA-Public Use
  Company Number: NL-JUBILANT CADISTA PHARMACEUTICALS-2016JUB00448

PATIENT
  Age: 66 Year
  Sex: Male

DRUGS (2)
  1. PREDNISONE. [Suspect]
     Active Substance: PREDNISONE
     Indication: CHRONIC OBSTRUCTIVE PULMONARY DISEASE
     Route: 065
  2. DUAL ANTIPLATELET THERAPY [Concomitant]
     Route: 065

REACTIONS (4)
  - Shock [Fatal]
  - Trichophytosis [Fatal]
  - Multiple organ dysfunction syndrome [Fatal]
  - Immunosuppression [Fatal]
